FAERS Safety Report 11105806 (Version 1)
Quarter: 2015Q2

REPORT INFORMATION
  Report Type: Spontaneous
  Country: US (occurrence: US)
  Receive Date: 20150512
  Receipt Date: 20150512
  Transmission Date: 20150821
  Serious: Yes (Other)
  Sender: FDA-Public Use
  Company Number: US-AUROBINDO-AUR-APL-2015-04120

PATIENT
  Age: 66 Year
  Sex: Male

DRUGS (2)
  1. METOPROLOL [Suspect]
     Active Substance: METOPROLOL
     Indication: MYOCARDIAL ISCHAEMIA
     Dosage: UNK
     Route: 065
  2. DOFETILIDE [Suspect]
     Active Substance: DOFETILIDE
     Indication: ATRIAL FIBRILLATION
     Dosage: UNK
     Route: 065

REACTIONS (8)
  - Electrocardiogram QT prolonged [Unknown]
  - Cardiotoxicity [Unknown]
  - Ventricular tachycardia [Recovered/Resolved]
  - Torsade de pointes [Not Recovered/Not Resolved]
  - Sinus tachycardia [Recovered/Resolved]
  - Heart rate decreased [Recovered/Resolved]
  - Ventricular fibrillation [Unknown]
  - Chest pain [Recovered/Resolved]
